FAERS Safety Report 8998514 (Version 1)
Quarter: 2013Q1

REPORT INFORMATION
  Report Type: Report from Study
  Country: US (occurrence: US)
  Receive Date: 20130103
  Receipt Date: 20130103
  Transmission Date: 20140127
  Serious: Yes (Other)
  Sender: FDA-Public Use
  Company Number: US-ROCHE-1175268

PATIENT
  Sex: Female
  Weight: 65.38 kg

DRUGS (5)
  1. OMALIZUMAB [Suspect]
     Indication: ASTHMA
     Route: 058
     Dates: start: 20120120, end: 201208
  2. ADVAIR [Concomitant]
     Indication: ASTHMA
     Dosage: 500/50
     Route: 048
     Dates: start: 2002
  3. PREDNISONE [Concomitant]
     Indication: ASTHMA
     Route: 048
     Dates: start: 2002
  4. PROAIR (UNITED STATES) [Concomitant]
     Indication: ASTHMA
     Route: 048
     Dates: start: 2011
  5. HCTZ [Concomitant]
     Indication: BLOOD PRESSURE INCREASED
     Route: 048
     Dates: start: 2012

REACTIONS (1)
  - Wheezing [Recovered/Resolved]
